FAERS Safety Report 21369361 (Version 1)
Quarter: 2022Q3

REPORT INFORMATION
  Report Type: Spontaneous
  Country: FR (occurrence: FR)
  Receive Date: 20220923
  Receipt Date: 20220923
  Transmission Date: 20221027
  Serious: Yes (Other)
  Sender: FDA-Public Use
  Company Number: None

PATIENT
  Age: 61 Year
  Sex: Male
  Weight: 71 kg

DRUGS (3)
  1. ATORVASTATIN [Suspect]
     Active Substance: ATORVASTATIN
     Indication: Product used for unknown indication
     Dosage: ATORVASTATIN 80 MG: 27 OCT-13 DEC ATORVASTATIN 40 MG: 7 JAN-(18 JAN) PANTOPRAZOLE 20 MG: 12-16 JAN
     Dates: start: 20211027, end: 20220118
  2. PANTOPRAZOLE [Suspect]
     Active Substance: PANTOPRAZOLE
     Indication: Product used for unknown indication
     Dosage: PANTOPRAZOLE 40 MG: 2-22 NOV +AMP; 5-12 JANUARY PANTOPRAZOLE 20 MG: 12-16 JANUARY
     Dates: start: 20211102, end: 20220116
  3. LANSOPRAZOLE [Suspect]
     Active Substance: LANSOPRAZOLE
     Indication: Product used for unknown indication
     Dosage: LANSOPRAZOLE 15 MG (4/DAY): 27 OCT-2 NOV LANSOPRAZOLE 15 MG (1/DAY): 22 NOV- 16 DEC
     Dates: start: 20211027, end: 20211216

REACTIONS (1)
  - Hepatic cytolysis [Unknown]

NARRATIVE: CASE EVENT DATE: 20211101
